FAERS Safety Report 5328754-0 (Version None)
Quarter: 2007Q2

REPORT INFORMATION
  Report Type: 
  Country: None (occurrence: None)
  Receive Date: 20070516
  Receipt Date: 20070516
  Transmission Date: 20071010
  Serious: No
  Sender: FDA-Public Use
  Company Number: None

PATIENT
  Age: 66 Year
  Sex: Female
  Weight: 82.4639 kg

DRUGS (2)
  1. CADUET [Suspect]
     Indication: HYPERCHOLESTEROLAEMIA
     Dosage: 0.5 TAB DAILY PO
     Route: 048
     Dates: start: 20060303, end: 20070227
  2. CADUET [Suspect]
     Indication: HYPERTENSION
     Dosage: 0.5 TAB DAILY PO
     Route: 048
     Dates: start: 20060303, end: 20070227

REACTIONS (3)
  - BACK PAIN [None]
  - BLOOD CREATINE PHOSPHOKINASE INCREASED [None]
  - PAIN IN EXTREMITY [None]
